FAERS Safety Report 18784376 (Version 59)
Quarter: 2022Q2

REPORT INFORMATION
  Report Type: Report from Study
  Country: MX (occurrence: MX)
  Receive Date: 20210125
  Receipt Date: 20220425
  Transmission Date: 20220721
  Serious: Yes (Hospitalization, Other)
  Sender: FDA-Public Use
  Company Number: MX-TAKEDA-MX202011122

PATIENT
  Age: 14 Year
  Sex: Male
  Weight: 15 kg

DRUGS (7)
  1. IDURSULFASE [Suspect]
     Active Substance: IDURSULFASE
     Indication: Mucopolysaccharidosis II
     Dosage: 6 MILLIGRAM
     Route: 042
     Dates: start: 20140514
  2. IDURSULFASE [Suspect]
     Active Substance: IDURSULFASE
     Dosage: 6 MILLIGRAM, 1/WEEK
     Route: 042
     Dates: start: 20140514
  3. IDURSULFASE [Suspect]
     Active Substance: IDURSULFASE
     Dosage: UNK, 1/WEEK
     Route: 042
     Dates: start: 20140814, end: 20220108
  4. ACETAMINOPHEN [Concomitant]
     Active Substance: ACETAMINOPHEN
     Indication: Body temperature abnormal
     Dosage: UNK
     Route: 048
     Dates: start: 20210106, end: 20210109
  5. ACETAMINOPHEN [Concomitant]
     Active Substance: ACETAMINOPHEN
     Indication: Pain
  6. ACETAMINOPHEN [Concomitant]
     Active Substance: ACETAMINOPHEN
     Indication: Pyrexia
  7. SODIUM CHLORIDE [Concomitant]
     Active Substance: SODIUM CHLORIDE
     Indication: Productive cough
     Dosage: UNK
     Route: 050
     Dates: start: 20210106, end: 20210108

REACTIONS (39)
  - Dyspnoea [Unknown]
  - Dizziness [Recovered/Resolved]
  - Headache [Recovered/Resolved]
  - Sepsis [Unknown]
  - Vascular device infection [Not Recovered/Not Resolved]
  - Dehydration [Unknown]
  - Underweight [Unknown]
  - Gastrostomy tube site complication [Not Recovered/Not Resolved]
  - Dysphagia [Unknown]
  - Swelling [Unknown]
  - Oxygen saturation decreased [Recovered/Resolved]
  - Catheter site inflammation [Recovered/Resolved]
  - Catheter site infection [Not Recovered/Not Resolved]
  - Pain [Recovered/Resolved]
  - Hypersensitivity [Recovered/Resolved]
  - Catheter placement [Not Recovered/Not Resolved]
  - Device issue [Unknown]
  - Pharyngitis [Not Recovered/Not Resolved]
  - Influenza [Not Recovered/Not Resolved]
  - Blood sodium decreased [Not Recovered/Not Resolved]
  - Vein rupture [Not Recovered/Not Resolved]
  - Seizure [Not Recovered/Not Resolved]
  - Rhinorrhoea [Not Recovered/Not Resolved]
  - Device related infection [Unknown]
  - Body temperature abnormal [Not Recovered/Not Resolved]
  - Therapy interrupted [Not Recovered/Not Resolved]
  - Illness [Not Recovered/Not Resolved]
  - Poor venous access [Not Recovered/Not Resolved]
  - Catheter site extravasation [Not Recovered/Not Resolved]
  - Productive cough [Not Recovered/Not Resolved]
  - Cough [Not Recovered/Not Resolved]
  - Pyrexia [Not Recovered/Not Resolved]
  - Peripheral venous disease [Not Recovered/Not Resolved]
  - Nasopharyngitis [Unknown]
  - Inability to afford medication [Unknown]
  - Product availability issue [Unknown]
  - Product dose omission issue [Not Recovered/Not Resolved]
  - Wrong technique in product usage process [Unknown]
  - Inappropriate schedule of product administration [Unknown]

NARRATIVE: CASE EVENT DATE: 20200320
